FAERS Safety Report 14336943 (Version 1)
Quarter: 2017Q4

REPORT INFORMATION
  Report Type: Spontaneous
  Country: US (occurrence: US)
  Receive Date: 20171228
  Receipt Date: 20171228
  Transmission Date: 20180321
  Serious: Yes (Hospitalization)
  Sender: FDA-Public Use
  Company Number: None

PATIENT
  Sex: Female

DRUGS (11)
  1. FUROSEMIDE. [Concomitant]
     Active Substance: FUROSEMIDE
  2. MEKINIST [Suspect]
     Active Substance: TRAMETINIB DIMETHYL SULFOXIDE
     Indication: MALIGNANT MELANOMA
     Route: 048
     Dates: start: 20160331
  3. VALSARTAN. [Concomitant]
     Active Substance: VALSARTAN
  4. MOTRIN [Concomitant]
     Active Substance: IBUPROFEN
  5. OMEPRAZOLE. [Concomitant]
     Active Substance: OMEPRAZOLE
  6. CYCLOBENZAPR [Concomitant]
     Active Substance: CYCLOBENZAPRINE
  7. FERROUS SULF [Concomitant]
     Active Substance: FERROUS SULFATE
  8. RANITIDINE. [Concomitant]
     Active Substance: RANITIDINE
  9. TAFINLAR [Suspect]
     Active Substance: DABRAFENIB MESYLATE
     Indication: MALIGNANT MELANOMA
     Route: 048
     Dates: start: 20160331
  10. IMODIUM ADV [Concomitant]
  11. DOXYCYC MONO [Concomitant]
     Active Substance: DOXYCYCLINE

REACTIONS (1)
  - Cellulitis [None]
